FAERS Safety Report 4956334-5 (Version None)
Quarter: 2006Q1

REPORT INFORMATION
  Report Type: 
  Country: None (occurrence: None)
  Receive Date: 20060323
  Receipt Date: 20060314
  Transmission Date: 20060701
  Serious: Yes (Hospitalization)
  Sender: FDA-Public Use
  Company Number: 2006037736

PATIENT
  Age: 24 Year
  Sex: Female

DRUGS (1)
  1. SOLU-MEDROL [Suspect]
     Indication: MULTIPLE SCLEROSIS
     Dosage: (1 GRAM), INTRAVENOUS
     Route: 042
     Dates: start: 20060313, end: 20060313

REACTIONS (6)
  - CONFUSIONAL STATE [None]
  - IRRITABILITY [None]
  - NYSTAGMUS [None]
  - PHARMACEUTICAL PRODUCT COMPLAINT [None]
  - PRURITUS GENERALISED [None]
  - RASH [None]
